FAERS Safety Report 7037861-6 (Version None)
Quarter: 2010Q4

REPORT INFORMATION
  Report Type: 
  Country: None (occurrence: None)
  Receive Date: 20101011
  Receipt Date: 20101005
  Transmission Date: 20110411
  Serious: Yes (Other)
  Sender: FDA-Public Use
  Company Number: CHPA2010NL15785

PATIENT
  Sex: Male
  Weight: 75 kg

DRUGS (1)
  1. LAMISIL [Suspect]
     Indication: FUNGAL INFECTION
     Dosage: 1 DF, ONCE/SINGLE
     Route: 061
     Dates: start: 20100908, end: 20100908

REACTIONS (3)
  - ANGIOEDEMA [None]
  - BLISTER [None]
  - LOCALISED INFECTION [None]
